FAERS Safety Report 5129201-4 (Version None)
Quarter: 2006Q4

REPORT INFORMATION
  Report Type: 
  Country: None (occurrence: None)
  Receive Date: 20061012
  Receipt Date: 20060927
  Transmission Date: 20070319
  Serious: Yes (Hospitalization)
  Sender: FDA-Public Use
  Company Number: 200609IM000553

PATIENT
  Sex: Male

DRUGS (2)
  1. ACTIMMUNE [Suspect]
     Indication: IDIOPATHIC PULMONARY FIBROSIS
     Dosage: 200 UG, TIW, SUBCUTANEOUS
     Route: 058
     Dates: start: 20020201
  2. DARVOCET [Concomitant]

REACTIONS (5)
  - CONDITION AGGRAVATED [None]
  - HALLUCINATION [None]
  - HEADACHE [None]
  - MYALGIA [None]
  - STAPHYLOCOCCAL BACTERAEMIA [None]
